FAERS Safety Report 15758877 (Version 2)
Quarter: 2019Q1

REPORT INFORMATION
  Report Type: Spontaneous
  Country: JP (occurrence: JP)
  Receive Date: 20181225
  Receipt Date: 20190119
  Transmission Date: 20190417
  Serious: Yes (Other)
  Sender: FDA-Public Use
  Company Number: JP-AMGEN-JPNSP2018183801

PATIENT
  Sex: Female

DRUGS (3)
  1. FOLIAMIN [Concomitant]
     Active Substance: FOLIC ACID
     Dosage: UNK
     Route: 065
  2. RHEUMATREX [Concomitant]
     Active Substance: METHOTREXATE SODIUM
     Indication: RHEUMATIC DISORDER
     Dosage: UNK
     Route: 065
  3. PRALIA [Suspect]
     Active Substance: DENOSUMAB
     Indication: OSTEOPOROSIS
     Dosage: 60 MG, UNK
     Route: 058

REACTIONS (2)
  - Matrix metalloproteinase-3 increased [Unknown]
  - Creatinine renal clearance decreased [Not Recovered/Not Resolved]
